FAERS Safety Report 4803579-0 (Version None)
Quarter: 2005Q4

REPORT INFORMATION
  Report Type: 
  Country: None (occurrence: None)
  Receive Date: 20051013
  Receipt Date: 20050928
  Transmission Date: 20060501
  Serious: Yes (Other)
  Sender: FDA-Public Use
  Company Number: 0205047

PATIENT
  Age: 45 Year
  Sex: Female

DRUGS (11)
  1. DEPODUR [Suspect]
     Indication: POSTOPERATIVE ANALGESIA
     Dosage: 10 MG (ONCE), EPIDURAL
     Route: 008
     Dates: start: 20050915, end: 20050915
  2. BENICAR HCT [Concomitant]
  3. PLAVIS (CLOPIDOGREL SULFATE) [Concomitant]
  4. CYMBALTA [Concomitant]
  5. ALLEGRA [Concomitant]
  6. CLONAZEPAM [Concomitant]
  7. LASIX [Concomitant]
  8. PREVACID [Concomitant]
  9. NABUMETONE [Concomitant]
  10. FENTANYL (FENTANYL) (AMP IV) [Concomitant]
  11. DIPRIVAN [Concomitant]

REACTIONS (3)
  - DIALYSIS [None]
  - HYPOTENSION [None]
  - RENAL FAILURE [None]
